FAERS Safety Report 14196084 (Version 1)
Quarter: 2017Q4

REPORT INFORMATION
  Report Type: Spontaneous
  Country: US (occurrence: US)
  Receive Date: 20171116
  Receipt Date: 20171116
  Transmission Date: 20180321
  Serious: No
  Sender: FDA-Public Use
  Company Number: US-BAUSCH-BL-2017-021486

PATIENT
  Age: 9 Year
  Sex: Male

DRUGS (1)
  1. XENAZINE [Suspect]
     Active Substance: TETRABENAZINE
     Indication: HUNTINGTON^S DISEASE
     Dosage: ONE 25 MG TABLET IN THE MORNING AND ONE-HALF 25 MG TABLET AT NIGHT
     Route: 048
     Dates: start: 2017

REACTIONS (2)
  - Depressed mood [Unknown]
  - Confusional state [Unknown]

NARRATIVE: CASE EVENT DATE: 2017
